FAERS Safety Report 16045293 (Version 2)
Quarter: 2019Q2

REPORT INFORMATION
  Report Type: Report from Study
  Country: HN (occurrence: HN)
  Receive Date: 20190307
  Receipt Date: 20190509
  Transmission Date: 20190711
  Serious: Yes (Other)
  Sender: FDA-Public Use
  Company Number: HN-SANIK-2019SA060366AA

PATIENT
  Age: 79 Year
  Sex: Male

DRUGS (5)
  1. CLOPIDOGREL BISULFATE. [Suspect]
     Active Substance: CLOPIDOGREL BISULFATE
     Indication: THROMBOSIS
     Dosage: 1 DF, QD (24 HOURS)
     Route: 048
     Dates: start: 2014, end: 201705
  2. LANTUS [Suspect]
     Active Substance: INSULIN GLARGINE
     Dosage: 27 IU, QD (24 HOURS)
     Route: 058
     Dates: start: 201705
  3. DIPROPHYLLINE [Concomitant]
     Active Substance: DYPHYLLINE
     Indication: CHRONIC OBSTRUCTIVE PULMONARY DISEASE
     Dosage: 0.5 DF, BID
  4. LANTUS [Suspect]
     Active Substance: INSULIN GLARGINE
     Indication: DIABETES MELLITUS
     Dosage: 27 IU, BID (TWICE A DAY)
     Route: 058
     Dates: start: 2009, end: 201705
  5. ACETYLSALICYLIC ACID/CLOPIDOGREL BISULFATE [Suspect]
     Active Substance: ASPIRIN\CLOPIDOGREL BISULFATE
     Indication: THROMBOSIS
     Dosage: 1 DF, QD
     Route: 048
     Dates: start: 201705

REACTIONS (3)
  - Off label use [Unknown]
  - Myocardial infarction [Recovered/Resolved]
  - Myocardial infarction [Recovered/Resolved]

NARRATIVE: CASE EVENT DATE: 2009
